FAERS Safety Report 16462351 (Version 8)
Quarter: 2021Q4

REPORT INFORMATION
  Report Type: Spontaneous
  Country: CA (occurrence: CA)
  Receive Date: 20190621
  Receipt Date: 20211201
  Transmission Date: 20220303
  Serious: Yes (Hospitalization, Disabling, Other)
  Sender: FDA-Public Use
  Company Number: CA-AMGEN-CANSP2019095328

PATIENT
  Age: 41 Year
  Sex: Male
  Weight: 90 kg

DRUGS (78)
  1. ENBREL [Suspect]
     Active Substance: ETANERCEPT
     Indication: Psoriatic arthropathy
     Dosage: UNK
     Route: 058
  2. ENBREL [Suspect]
     Active Substance: ETANERCEPT
     Indication: Rheumatoid arthritis
     Dosage: UNK
     Route: 065
  3. ENBREL [Suspect]
     Active Substance: ETANERCEPT
     Indication: Psoriasis
  4. SULFASALAZINE [Suspect]
     Active Substance: SULFASALAZINE
     Dosage: UNK, ENDOCERVICAL
     Route: 065
  5. INFLIXIMAB [Suspect]
     Active Substance: INFLIXIMAB
     Indication: Psoriatic arthropathy
     Dosage: UNK
     Route: 065
  6. IBUPROFEN [Suspect]
     Active Substance: IBUPROFEN
     Indication: Psoriatic arthropathy
     Dosage: 600 MILLIGRAM
     Route: 048
  7. RITUXIMAB [Suspect]
     Active Substance: RITUXIMAB
     Indication: Rheumatoid arthritis
     Dosage: UNK UNK, QD
     Route: 065
  8. ADALIMUMAB [Suspect]
     Active Substance: ADALIMUMAB
     Indication: Psoriatic arthropathy
     Dosage: UNK
     Route: 058
  9. ADALIMUMAB [Suspect]
     Active Substance: ADALIMUMAB
     Dosage: UNK
     Route: 058
  10. LEFLUNOMIDE [Suspect]
     Active Substance: LEFLUNOMIDE
     Dosage: UNK
     Route: 065
  11. SULFAMETHOXAZOLE [Suspect]
     Active Substance: SULFAMETHOXAZOLE
     Dosage: 600 MILLIGRAM
     Route: 048
  12. APREMILAST [Suspect]
     Active Substance: APREMILAST
     Indication: Rheumatoid arthritis
     Dosage: 30 MILLIGRAM, BID
     Route: 048
  13. APREMILAST [Suspect]
     Active Substance: APREMILAST
     Indication: Psoriatic arthropathy
     Dosage: 120 MILLIGRAM, QD
     Route: 065
  14. APREMILAST [Suspect]
     Active Substance: APREMILAST
     Indication: Psoriasis
  15. CYCLOSPORINE [Suspect]
     Active Substance: CYCLOSPORINE
     Dosage: UNK
     Route: 048
  16. CYCLOSPORINE [Suspect]
     Active Substance: CYCLOSPORINE
     Dosage: UNK
     Route: 065
  17. CIMZIA [Suspect]
     Active Substance: CERTOLIZUMAB PEGOL
     Dosage: UNK
     Route: 058
  18. CIMZIA [Suspect]
     Active Substance: CERTOLIZUMAB PEGOL
     Indication: Psoriatic arthropathy
     Dosage: UNK
     Route: 058
  19. NAPROXEN [Suspect]
     Active Substance: NAPROXEN
     Dosage: 600 MILLIGRAM, QD
     Route: 048
  20. IBUPROFEN [Suspect]
     Active Substance: IBUPROFEN
     Dosage: 600 MILLIGRAM
     Route: 048
  21. HUMIRA [Suspect]
     Active Substance: ADALIMUMAB
     Indication: Psoriatic arthropathy
     Dosage: UNK
     Route: 065
  22. HUMIRA [Suspect]
     Active Substance: ADALIMUMAB
     Indication: Psoriatic arthropathy
     Dosage: UNK
     Route: 058
  23. HUMIRA [Suspect]
     Active Substance: ADALIMUMAB
     Dosage: UNK
     Route: 058
  24. HUMIRA [Suspect]
     Active Substance: ADALIMUMAB
     Dosage: UNK
     Route: 065
  25. HUMIRA [Suspect]
     Active Substance: ADALIMUMAB
     Dosage: UNK
     Route: 058
  26. MOTRIN [Suspect]
     Active Substance: IBUPROFEN
     Dosage: 6 DOSAGE FORM, QD
     Route: 048
  27. MOTRIN [Suspect]
     Active Substance: IBUPROFEN
     Dosage: 600 MILLIGRAM
     Route: 048
  28. OTEZLA [Suspect]
     Active Substance: APREMILAST
     Indication: Psoriatic arthropathy
     Dosage: UNK
     Route: 065
  29. OTEZLA [Suspect]
     Active Substance: APREMILAST
     Dosage: UNK
     Route: 048
  30. OTEZLA [Suspect]
     Active Substance: APREMILAST
     Dosage: 30 MILLIGRAM, BID
     Route: 048
  31. USTEKINUMAB [Suspect]
     Active Substance: USTEKINUMAB
     Indication: Psoriatic arthropathy
     Dosage: UNK
     Route: 065
  32. SIMPONI [Suspect]
     Active Substance: GOLIMUMAB
     Indication: Psoriatic arthropathy
     Dosage: UNK
     Route: 058
  33. SIMPONI [Suspect]
     Active Substance: GOLIMUMAB
     Indication: Psoriatic arthropathy
     Dosage: UNK
     Route: 058
  34. SIMPONI [Suspect]
     Active Substance: GOLIMUMAB
     Dosage: UNK
     Route: 058
  35. SIMPONI [Suspect]
     Active Substance: GOLIMUMAB
     Dosage: UNK
     Route: 058
  36. HYDROXYCHLOROQUINE SULFATE [Suspect]
     Active Substance: HYDROXYCHLOROQUINE SULFATE
     Indication: Rheumatoid arthritis
     Dosage: UNK
     Route: 065
  37. STELARA [Suspect]
     Active Substance: USTEKINUMAB
     Indication: Psoriatic arthropathy
     Dosage: UNK
     Route: 058
  38. STELARA [Suspect]
     Active Substance: USTEKINUMAB
     Indication: Psoriatic arthropathy
     Dosage: UNK
     Route: 058
  39. STELARA [Suspect]
     Active Substance: USTEKINUMAB
     Dosage: UNK
     Route: 058
  40. STELARA [Suspect]
     Active Substance: USTEKINUMAB
     Dosage: UNK
     Route: 058
  41. ERELZI [Suspect]
     Active Substance: ETANERCEPT-SZZS
     Indication: Rheumatoid arthritis
     Dosage: UNK
     Route: 065
  42. ERELZI [Suspect]
     Active Substance: ETANERCEPT-SZZS
     Indication: Psoriatic arthropathy
     Dosage: UNK
     Route: 058
  43. ERELZI [Suspect]
     Active Substance: ETANERCEPT-SZZS
     Indication: Psoriasis
  44. REMICADE [Suspect]
     Active Substance: INFLIXIMAB
     Dosage: UNK
     Route: 042
  45. GOLIMUMAB [Suspect]
     Active Substance: GOLIMUMAB
     Indication: Psoriatic arthropathy
     Dosage: UNK
     Route: 058
  46. FOSAMAX [Suspect]
     Active Substance: ALENDRONATE SODIUM
     Dosage: 70 MILLIGRAM
     Route: 065
  47. LEFLUNOMIDE [Suspect]
     Active Substance: LEFLUNOMIDE
     Dosage: UNK
     Route: 048
  48. ORENCIA [Suspect]
     Active Substance: ABATACEPT
     Indication: Psoriatic arthropathy
     Dosage: UNK
     Route: 065
  49. ORENCIA [Suspect]
     Active Substance: ABATACEPT
     Dosage: UNK
     Route: 058
  50. ORENCIA [Suspect]
     Active Substance: ABATACEPT
     Dosage: UNK
     Route: 065
  51. ORENCIA [Suspect]
     Active Substance: ABATACEPT
     Dosage: UNK
     Route: 058
  52. BENADRYL [DIPHENHYDRAMINE;PARACETAMOL;PHENYLPROPANOLAMINE HYDROCHLORID [Concomitant]
     Dosage: UNK
  53. BENADRYL [DIPHENHYDRAMINE;PARACETAMOL;PHENYLPROPANOLAMINE HYDROCHLORID [Concomitant]
     Dosage: UNK
  54. COLCHICINE [Concomitant]
     Active Substance: COLCHICINE
     Dosage: 6 MILLIGRAM
     Route: 048
  55. COLCHICINE [Concomitant]
     Active Substance: COLCHICINE
     Dosage: 0.6 MILLIGRAM
     Route: 048
  56. DEXILANT [Concomitant]
     Active Substance: DEXLANSOPRAZOLE
     Dosage: UNK
  57. FEBUXOSTAT [Concomitant]
     Active Substance: FEBUXOSTAT
     Dosage: UNK
  58. FOLIC ACID [Concomitant]
     Active Substance: FOLIC ACID
     Dosage: UNK
     Route: 065
  59. GRAVOL [Concomitant]
     Active Substance: DIMENHYDRINATE
     Dosage: UNK
  60. GRAVOL [Concomitant]
     Active Substance: DIMENHYDRINATE
     Dosage: UNK
  61. METHOTREXATE [Concomitant]
     Active Substance: METHOTREXATE
     Dosage: 4 DOSAGE FORM, QWK
  62. METHOTREXATE [Concomitant]
     Active Substance: METHOTREXATE
     Dosage: 4 MILLIGRAM, QWK
  63. NITRAZEPAM [Concomitant]
     Active Substance: NITRAZEPAM
     Dosage: 5 MILLIGRAM
  64. NITRAZEPAM [Concomitant]
     Active Substance: NITRAZEPAM
     Dosage: 5 MILLIGRAM
  65. NITRAZEPAM [Concomitant]
     Active Substance: NITRAZEPAM
     Dosage: 50 MILLIGRAM
  66. NITRAZEPAM [Concomitant]
     Active Substance: NITRAZEPAM
     Dosage: 5 MILLIGRAM
  67. OXYCODONE HYDROCHLORIDE [Concomitant]
     Active Substance: OXYCODONE HYDROCHLORIDE
     Dosage: 10 MILLIGRAM AND 40 MILLIGRAM
  68. OXYCODONE HYDROCHLORIDE [Concomitant]
     Active Substance: OXYCODONE HYDROCHLORIDE
     Dosage: UNK
  69. OXYCODONE HYDROCHLORIDE [Concomitant]
     Active Substance: OXYCODONE HYDROCHLORIDE
     Dosage: UNK
  70. OXYCODONE [Concomitant]
     Active Substance: OXYCODONE
     Dosage: 40 MILLIGRAM
  71. OXYCODONE [Concomitant]
     Active Substance: OXYCODONE
     Dosage: 40 MILLIGRAM
  72. ULORIC [Concomitant]
     Active Substance: FEBUXOSTAT
     Dosage: 8 MILLIGRAM, BID
     Route: 048
  73. ULORIC [Concomitant]
     Active Substance: FEBUXOSTAT
     Dosage: UNK
  74. ULORIC [Concomitant]
     Active Substance: FEBUXOSTAT
     Dosage: UNK
  75. ULORIC [Concomitant]
     Active Substance: FEBUXOSTAT
     Dosage: 8 MILLIGRAM, BID
  76. ULORIC [Concomitant]
     Active Substance: FEBUXOSTAT
     Dosage: UNK UNK, 2X/DAY
  77. OXYCODONE [Concomitant]
     Active Substance: OXYCODONE
     Dosage: UNK
     Route: 065
  78. PREDNISONE [Concomitant]
     Active Substance: PREDNISONE

REACTIONS (47)
  - Enthesopathy [Not Recovered/Not Resolved]
  - C-reactive protein abnormal [Not Recovered/Not Resolved]
  - Contraindicated product administered [Not Recovered/Not Resolved]
  - Drug hypersensitivity [Not Recovered/Not Resolved]
  - Drug intolerance [Not Recovered/Not Resolved]
  - Erythema [Not Recovered/Not Resolved]
  - Headache [Not Recovered/Not Resolved]
  - Loss of personal independence in daily activities [Not Recovered/Not Resolved]
  - Nausea [Not Recovered/Not Resolved]
  - Psoriatic arthropathy [Not Recovered/Not Resolved]
  - Synovitis [Not Recovered/Not Resolved]
  - Tendonitis [Not Recovered/Not Resolved]
  - Tenosynovitis [Not Recovered/Not Resolved]
  - Tongue disorder [Not Recovered/Not Resolved]
  - Drug ineffective [Not Recovered/Not Resolved]
  - Treatment failure [Not Recovered/Not Resolved]
  - Aspartate aminotransferase increased [Not Recovered/Not Resolved]
  - Alanine aminotransferase increased [Not Recovered/Not Resolved]
  - Alanine aminotransferase abnormal [Not Recovered/Not Resolved]
  - Off label use [Not Recovered/Not Resolved]
  - Blood parathyroid hormone decreased [Not Recovered/Not Resolved]
  - C-reactive protein increased [Not Recovered/Not Resolved]
  - Drug eruption [Not Recovered/Not Resolved]
  - General physical health deterioration [Not Recovered/Not Resolved]
  - Granuloma skin [Not Recovered/Not Resolved]
  - Hypercalcaemia [Not Recovered/Not Resolved]
  - Inflammation [Not Recovered/Not Resolved]
  - Infusion related reaction [Not Recovered/Not Resolved]
  - Mobility decreased [Not Recovered/Not Resolved]
  - Mucosal inflammation [Not Recovered/Not Resolved]
  - Panniculitis [Not Recovered/Not Resolved]
  - Rash pruritic [Not Recovered/Not Resolved]
  - Red blood cell sedimentation rate [Not Recovered/Not Resolved]
  - Rheumatoid arthritis [Not Recovered/Not Resolved]
  - Rheumatoid nodule [Not Recovered/Not Resolved]
  - Skin necrosis [Not Recovered/Not Resolved]
  - Skin ulcer [Not Recovered/Not Resolved]
  - Ulcer [Not Recovered/Not Resolved]
  - Fatigue [Not Recovered/Not Resolved]
  - Hepatic enzyme increased [Not Recovered/Not Resolved]
  - Pain [Not Recovered/Not Resolved]
  - Peripheral swelling [Not Recovered/Not Resolved]
  - Rash [Not Recovered/Not Resolved]
  - Therapy non-responder [Not Recovered/Not Resolved]
  - Infection [Not Recovered/Not Resolved]
  - Basal cell carcinoma [Not Recovered/Not Resolved]
  - Erythema [Not Recovered/Not Resolved]
